FAERS Safety Report 4667579-6 (Version None)
Quarter: 2005Q2

REPORT INFORMATION
  Report Type: 
  Country: None (occurrence: None)
  Receive Date: 20050520
  Receipt Date: 20050224
  Transmission Date: 20051028
  Serious: Yes (Hospitalization)
  Sender: FDA-Public Use
  Company Number: PHEH2005US02473

PATIENT
  Sex: Female
  Weight: 45 kg

DRUGS (1)
  1. AREDIA [Suspect]
     Indication: METASTASES TO BONE
     Dosage: 90 MG, UNK
     Dates: start: 19970101, end: 20020901

REACTIONS (3)
  - OSTECTOMY [None]
  - OSTEONECROSIS [None]
  - PRIMARY SEQUESTRUM [None]
